FAERS Safety Report 5523551-5 (Version None)
Quarter: 2007Q4

REPORT INFORMATION
  Report Type: 
  Country: None (occurrence: None)
  Receive Date: 20071119
  Receipt Date: 20071119
  Transmission Date: 20080405
  Serious: Yes (Other)
  Sender: FDA-Public Use
  Company Number: None

PATIENT
  Sex: Male
  Weight: 43.0917 kg

DRUGS (3)
  1. STRATTERA [Suspect]
     Indication: ATTENTION DEFICIT/HYPERACTIVITY DISORDER
     Dosage: 18 - 36 MG DAILY PO
     Route: 048
     Dates: start: 20071101, end: 20071112
  2. ZOLOFT [Suspect]
     Indication: OBSESSIVE-COMPULSIVE DISORDER
     Dosage: 150 MG DAILY PO
     Route: 048
     Dates: start: 20070301, end: 20071116
  3. FLOVENT [Concomitant]

REACTIONS (11)
  - ABNORMAL BEHAVIOUR [None]
  - AGGRESSION [None]
  - AGITATION [None]
  - AKATHISIA [None]
  - ANGER [None]
  - ATTENTION DEFICIT/HYPERACTIVITY DISORDER [None]
  - CRYING [None]
  - DEPRESSED MOOD [None]
  - FATIGUE [None]
  - OPPOSITIONAL DEFIANT DISORDER [None]
  - VERBAL ABUSE [None]
